FAERS Safety Report 12934224 (Version 3)
Quarter: 2018Q2

REPORT INFORMATION
  Report Type: Spontaneous
  Country: US (occurrence: US)
  Receive Date: 20161111
  Receipt Date: 20180417
  Transmission Date: 20180711
  Serious: Yes (Death, Other)
  Sender: FDA-Public Use
  Company Number: US-ENDO PHARMACEUTICALS INC.-2016-006757

PATIENT
  Age: 58 Year
  Sex: Male
  Weight: 102.4 kg

DRUGS (5)
  1. LISINOPRIL TABLETS [Concomitant]
     Active Substance: LISINOPRIL
     Indication: HYPERTENSION
     Dosage: UNK UNKNOWN, UNKNOWN
     Route: 065
     Dates: start: 2010, end: 20150927
  2. QUETIAPINE FUMARATE ER [Concomitant]
     Active Substance: QUETIAPINE FUMARATE
     Indication: INSOMNIA
     Dosage: UNK UNKNOWN, UNKNOWN
     Route: 065
     Dates: start: 2009, end: 20150927
  3. ANDROGEL [Suspect]
     Active Substance: TESTOSTERONE
     Indication: ANDROGEN REPLACEMENT THERAPY
     Dosage: UNK UNKNOWN, UNKNOWN
     Route: 065
     Dates: start: 20121206, end: 20150927
  4. TESTIM [Suspect]
     Active Substance: TESTOSTERONE
     Indication: ANDROGEN REPLACEMENT THERAPY
     Dosage: UNK UNKNOWN, UNKNOWN
     Route: 062
     Dates: start: 201303, end: 201304
  5. TESTIM [Suspect]
     Active Substance: TESTOSTERONE
     Dosage: 50 MG, DAILY
     Route: 062
     Dates: start: 201304, end: 20131012

REACTIONS (5)
  - Cardiovascular disorder [Fatal]
  - Anxiety [Unknown]
  - Cardiac arrest [Fatal]
  - Insomnia [Unknown]
  - Arteriosclerosis [Fatal]

NARRATIVE: CASE EVENT DATE: 20150927
